FAERS Safety Report 12452182 (Version 1)
Quarter: 2016Q2

REPORT INFORMATION
  Report Type: Spontaneous
  Country: AT (occurrence: AT)
  Receive Date: 20160609
  Receipt Date: 20160609
  Transmission Date: 20160815
  Serious: Yes (Life-Threatening, Hospitalization, Other)
  Sender: FDA-Public Use
  Company Number: AT-JNJFOC-20160605398

PATIENT
  Age: 66 Year
  Sex: Female
  Weight: 92 kg

DRUGS (18)
  1. DEPAKINE [Suspect]
     Active Substance: VALPROATE SODIUM
     Indication: PRODUCT USED FOR UNKNOWN INDICATION
     Route: 065
     Dates: end: 20160215
  2. NEPHROTRANS [Concomitant]
     Route: 065
  3. SEROQUEL [Concomitant]
     Active Substance: QUETIAPINE FUMARATE
     Route: 065
     Dates: end: 20160210
  4. SEROQUEL [Concomitant]
     Active Substance: QUETIAPINE FUMARATE
     Route: 065
     Dates: start: 20160211, end: 20160211
  5. TEMESTA [Concomitant]
     Active Substance: LORAZEPAM
     Route: 065
     Dates: start: 20160216, end: 20160217
  6. LITHIUM. [Concomitant]
     Active Substance: LITHIUM
     Route: 065
  7. RISPERDAL [Suspect]
     Active Substance: RISPERIDONE
     Indication: PRODUCT USED FOR UNKNOWN INDICATION
     Route: 065
     Dates: start: 20160217
  8. DEPAKINE [Suspect]
     Active Substance: VALPROATE SODIUM
     Indication: PRODUCT USED FOR UNKNOWN INDICATION
     Dosage: 1 X 500 MG AND 1 X 250 MG (750 MG)
     Route: 065
     Dates: start: 20160216, end: 20160216
  9. RISPERDAL [Suspect]
     Active Substance: RISPERIDONE
     Indication: PRODUCT USED FOR UNKNOWN INDICATION
     Route: 065
     Dates: start: 20160212, end: 20160212
  10. CONCOR [Concomitant]
     Active Substance: BISOPROLOL FUMARATE
     Route: 065
  11. RISPERDAL [Suspect]
     Active Substance: RISPERIDONE
     Indication: PRODUCT USED FOR UNKNOWN INDICATION
     Route: 065
     Dates: start: 20160213, end: 20160216
  12. RISPERDAL [Suspect]
     Active Substance: RISPERIDONE
     Indication: PRODUCT USED FOR UNKNOWN INDICATION
     Route: 065
     Dates: start: 20160211, end: 20160211
  13. UROSIN [Concomitant]
     Active Substance: ALLOPURINOL
     Route: 065
  14. PANTOLOC [Concomitant]
     Active Substance: PANTOPRAZOLE SODIUM
     Route: 065
  15. DEPAKINE [Suspect]
     Active Substance: VALPROATE SODIUM
     Indication: PRODUCT USED FOR UNKNOWN INDICATION
     Route: 065
     Dates: start: 20160217, end: 20160217
  16. PIPERACILLIN/TAZOBACTAM [Concomitant]
     Active Substance: PIPERACILLIN SODIUM\TAZOBACTAM SODIUM
     Dosage: 4/0.5 G
     Route: 065
     Dates: start: 20160125, end: 20160203
  17. DEPAKINE [Suspect]
     Active Substance: VALPROATE SODIUM
     Indication: PRODUCT USED FOR UNKNOWN INDICATION
     Route: 065
     Dates: start: 20160218, end: 20160218
  18. PRAXITEN [Concomitant]
     Active Substance: OXAZEPAM
     Dosage: 30-45 MG
     Route: 065

REACTIONS (2)
  - General physical health deterioration [Recovered/Resolved]
  - Disturbance in attention [Recovering/Resolving]
